FAERS Safety Report 4354162-5 (Version None)
Quarter: 2004Q2

REPORT INFORMATION
  Report Type: 
  Country: None (occurrence: None)
  Receive Date: 20040503
  Receipt Date: 20040423
  Transmission Date: 20050107
  Serious: Yes (Hospitalization)
  Sender: FDA-Public Use
  Company Number: HQWYE587526APR04

PATIENT
  Age: 79 Year
  Sex: Female

DRUGS (7)
  1. AMIODARONE HCL [Suspect]
     Indication: ATRIAL FIBRILLATION
     Dosage: 200 MG 1 X PER 1 DAY
  2. LEVOTHYROXINE SODIUM [Concomitant]
  3. ACETAMINOPHEN [Concomitant]
  4. ASPIRIN [Concomitant]
  5. ENALAPRIL MALEATE [Concomitant]
  6. FUROSEMIDE [Concomitant]
  7. CO-AMILOFRUSE (AMILORIDE HYDROCHLORIDE/FUROSEMIDE) [Concomitant]

REACTIONS (2)
  - FALL [None]
  - HYPOTHYROIDISM [None]
